FAERS Safety Report 20392992 (Version 2)
Quarter: 2022Q1

REPORT INFORMATION
  Report Type: Spontaneous
  Country: CN (occurrence: CN)
  Receive Date: 20220128
  Receipt Date: 20220221
  Transmission Date: 20220423
  Serious: Yes (Life-Threatening, Hospitalization, Other)
  Sender: FDA-Public Use
  Company Number: CN-SA-SAC20220127000899

PATIENT
  Age: 49 Year
  Sex: Male
  Weight: 66 kg

DRUGS (2)
  1. ELOXATIN [Suspect]
     Active Substance: OXALIPLATIN
     Dosage: 240 MG, 1X
     Route: 041
     Dates: start: 20220109, end: 20220109
  2. GLUCOSE INJECTION MP [Concomitant]
     Dosage: 500 ML, 1X
     Route: 041
     Dates: start: 20220109, end: 20220109

REACTIONS (1)
  - Anaphylactic shock [Recovered/Resolved]

NARRATIVE: CASE EVENT DATE: 20220109
